FAERS Safety Report 25730843 (Version 1)
Quarter: 2025Q3

REPORT INFORMATION
  Report Type: Spontaneous
  Country: EU (occurrence: EU)
  Receive Date: 20250827
  Receipt Date: 20250827
  Transmission Date: 20251020
  Serious: Yes (Other)
  Sender: GLAXOSMITHKLINE
  Company Number: None

PATIENT
  Age: 63 Year
  Sex: Male

DRUGS (2)
  1. SUMATRIPTAN SUCCINATE [Suspect]
     Active Substance: SUMATRIPTAN SUCCINATE
     Indication: Cluster headache
  2. SUMATRIPTAN SUCCINATE [Suspect]
     Active Substance: SUMATRIPTAN SUCCINATE

REACTIONS (1)
  - Vascular purpura [Not Recovered/Not Resolved]

NARRATIVE: CASE EVENT DATE: 20250705
